FAERS Safety Report 18462258 (Version 1)
Quarter: 2020Q4

REPORT INFORMATION
  Report Type: Spontaneous
  Country: US (occurrence: US)
  Receive Date: 20201103
  Receipt Date: 20201103
  Transmission Date: 20210114
  Serious: No
  Sender: FDA-Public Use
  Company Number: None

PATIENT
  Sex: Male

DRUGS (1)
  1. STELARA [Suspect]
     Active Substance: USTEKINUMAB
     Indication: RHEUMATOID ARTHRITIS
     Dosage: ?          OTHER FREQUENCY:ONCE EVERY 12 WEEK;?
     Route: 058
     Dates: start: 20200404

REACTIONS (5)
  - Device malfunction [None]
  - Incorrect dose administered by device [None]
  - Device deployment issue [None]
  - Device leakage [None]
  - Condition aggravated [None]
